FAERS Safety Report 12788632 (Version 2)
Quarter: 2016Q4

REPORT INFORMATION
  Report Type: Spontaneous
  Country: JP (occurrence: JP)
  Receive Date: 20160928
  Receipt Date: 20161012
  Transmission Date: 20170207
  Serious: Yes (Death)
  Sender: FDA-Public Use
  Company Number: PHJP2016JP027505

PATIENT
  Age: 21 Year
  Sex: Female

DRUGS (1)
  1. AFINITOR [Suspect]
     Active Substance: EVEROLIMUS
     Indication: KIDNEY ANGIOMYOLIPOMA
     Dosage: 5 MG, QD
     Route: 048
     Dates: start: 2016

REACTIONS (3)
  - Dyspnoea [Fatal]
  - Epithelioid sarcoma [Fatal]
  - Concomitant disease progression [Fatal]

NARRATIVE: CASE EVENT DATE: 201608
